FAERS Safety Report 21313092 (Version 1)
Quarter: 2022Q3

REPORT INFORMATION
  Report Type: Report from Study
  Country: FR (occurrence: FR)
  Receive Date: 20220909
  Receipt Date: 20220909
  Transmission Date: 20221027
  Serious: Yes (Hospitalization, Other)
  Sender: FDA-Public Use
  Company Number: FR-TAKEDA-2022TUS061910

PATIENT
  Age: 33 Year
  Sex: Female

DRUGS (4)
  1. ICATIBANT [Suspect]
     Active Substance: ICATIBANT ACETATE
     Indication: Hereditary angioedema
     Dosage: UNK
     Route: 065
     Dates: start: 20141225
  2. ICATIBANT [Suspect]
     Active Substance: ICATIBANT ACETATE
     Indication: Hereditary angioedema
     Dosage: UNK
     Route: 065
     Dates: start: 20141225
  3. ICATIBANT [Suspect]
     Active Substance: ICATIBANT ACETATE
     Dosage: UNK
     Route: 050
     Dates: start: 202001
  4. ICATIBANT [Suspect]
     Active Substance: ICATIBANT ACETATE
     Dosage: UNK
     Route: 050
     Dates: start: 202001

REACTIONS (3)
  - Delivery [Recovered/Resolved]
  - Vascular device infection [Recovered/Resolved]
  - Abdominal hernia [Recovered/Resolved]

NARRATIVE: CASE EVENT DATE: 20161208
